FAERS Safety Report 25653321 (Version 1)
Quarter: 2025Q3

REPORT INFORMATION
  Report Type: Spontaneous
  Country: EU (occurrence: EU)
  Receive Date: 20250807
  Receipt Date: 20250807
  Transmission Date: 20251020
  Serious: Yes (Other)
  Sender: AMGEN
  Company Number: EU-AMGEN-DEUSP2025152448

PATIENT
  Age: 59 Year
  Sex: Male

DRUGS (11)
  1. ADALIMUMAB [Suspect]
     Active Substance: ADALIMUMAB
     Indication: Still^s disease
     Dosage: 40 MILLIGRAM, Q2WK (FOR 2 MONTHS)
     Route: 065
  2. ANAKINRA [Concomitant]
     Active Substance: ANAKINRA
     Indication: Still^s disease
     Dosage: 100 MILLIGRAM, QD
     Route: 065
  3. AZATHIOPRINE [Concomitant]
     Active Substance: AZATHIOPRINE
     Indication: Still^s disease
     Dosage: 75 MILLIGRAM, BID (FOR 1 MONTH)
  4. METHOTREXATE [Concomitant]
     Active Substance: METHOTREXATE
     Indication: Still^s disease
     Dosage: 10 MILLIGRAM, QD (FOR 6 MONTHS)
     Route: 048
  5. METHOTREXATE [Concomitant]
     Active Substance: METHOTREXATE
     Dosage: 15 MILLIGRAM, QWK (FOR 8 MONTHS)
     Route: 058
  6. COLCHICINE [Concomitant]
     Active Substance: COLCHICINE
     Indication: Still^s disease
     Dosage: 0.5 MILLIGRAM, BID
  7. CYCLOSPORINE [Concomitant]
     Active Substance: CYCLOSPORINE
     Indication: Still^s disease
     Dosage: 75 MILLIGRAM, BID
  8. TOCILIZUMAB [Concomitant]
     Active Substance: TOCILIZUMAB
     Indication: Still^s disease
     Dosage: 162 MILLIGRAM, QWK
  9. CANAKINUMAB [Concomitant]
     Active Substance: CANAKINUMAB
     Indication: Still^s disease
     Dosage: 150 MILLIGRAM, QMO
  10. UPADACITINIB [Concomitant]
     Active Substance: UPADACITINIB
     Indication: Still^s disease
     Dosage: 15 MILLIGRAM, QD
  11. TOFACITINIB [Concomitant]
     Active Substance: TOFACITINIB
     Indication: Still^s disease
     Dosage: 5 MILLIGRAM, BID

REACTIONS (11)
  - Myelodysplastic syndrome [Unknown]
  - Cytokine release syndrome [Unknown]
  - Febrile neutropenia [Unknown]
  - Acute kidney injury [Unknown]
  - Adrenal insufficiency [Unknown]
  - Atrial fibrillation [Unknown]
  - Meningitis listeria [Unknown]
  - Drug ineffective for unapproved indication [Unknown]
  - VEXAS syndrome [Recovered/Resolved]
  - Off label use [Unknown]
  - Infection [Unknown]

NARRATIVE: CASE EVENT DATE: 20220201
